FAERS Safety Report 19883695 (Version 2)
Quarter: 2022Q1

REPORT INFORMATION
  Report Type: Other
  Country: CA (occurrence: CA)
  Receive Date: 20210927
  Receipt Date: 20220324
  Transmission Date: 20220423
  Serious: Yes (Death, Hospitalization, Other)
  Sender: FDA-Public Use
  Company Number: CA-TOLMAR, INC.-21CA028625

PATIENT
  Age: 74 Year
  Sex: Male

DRUGS (4)
  1. ELIGARD [Suspect]
     Active Substance: LEUPROLIDE ACETATE
     Indication: Prostate cancer
     Dosage: 22.5 MILLIGRAM, Q 3 MONTH
     Route: 058
     Dates: start: 20190604
  2. ELIGARD [Suspect]
     Active Substance: LEUPROLIDE ACETATE
     Dosage: 22.5 MILLIGRAM, Q 3 MONTH
     Route: 058
     Dates: start: 20210630
  3. ELIGARD [Suspect]
     Active Substance: LEUPROLIDE ACETATE
     Dosage: 22.5 MILLIGRAM, Q 3 MONTH
     Route: 058
     Dates: start: 20210922
  4. ELIGARD [Suspect]
     Active Substance: LEUPROLIDE ACETATE
     Dosage: 22.5 MILLIGRAM, Q 3 MONTH
     Route: 058
     Dates: start: 20211224

REACTIONS (12)
  - Death [Fatal]
  - Pneumonia [Unknown]
  - Pyrexia [Unknown]
  - Metastases to bone [Unknown]
  - Cancer pain [Unknown]
  - Metastasis [Unknown]
  - Inappropriate schedule of product administration [Recovered/Resolved]
  - Body temperature fluctuation [Unknown]
  - Headache [Unknown]
  - Arthralgia [Unknown]
  - Hot flush [Unknown]
  - Asthenia [Unknown]

NARRATIVE: CASE EVENT DATE: 20211201
